FAERS Safety Report 6550323-5 (Version None)
Quarter: 2010Q1

REPORT INFORMATION
  Report Type: 
  Country: None (occurrence: None)
  Receive Date: 20100119
  Receipt Date: 20100107
  Transmission Date: 20100710
  Serious: Yes (Other)
  Sender: FDA-Public Use
  Company Number: AE-2009-365

PATIENT
  Age: 63 Year
  Sex: Male
  Weight: 105 kg

DRUGS (9)
  1. METFORMIN HCL [Suspect]
     Dosage: 850MG, QD
  2. CISPLATIN [Suspect]
     Indication: URETHRAL CANCER
  3. GEMCITABINE [Suspect]
     Indication: URETHRAL CANCER
  4. PIPERACILLIN AND TAZOBACTAM [Suspect]
     Dosage: IV
     Route: 042
  5. LINEZOLID [Suspect]
     Indication: URINARY TRACT INFECTION STAPHYLOCOCCAL
  6. PARACETAMOL [Suspect]
     Dosage: 500 MG, TID
  7. LISINOPRIL AND HYDROCHLOROTHIAZIDE [Suspect]
     Indication: HYPERTENSION
     Dosage: QD
  8. ESOMEPRAZOLE [Suspect]
     Dosage: 40 MG, BID
  9. CARBOPLATIN [Suspect]
     Indication: URETHRAL CANCER

REACTIONS (5)
  - BLADDER PAIN [None]
  - DRUG INTERACTION [None]
  - PYREXIA [None]
  - RENAL IMPAIRMENT [None]
  - URETHRAL CANCER [None]
